FAERS Safety Report 6397936-1 (Version None)
Quarter: 2009Q4

REPORT INFORMATION
  Report Type: 
  Country: None (occurrence: None)
  Receive Date: 20091006
  Receipt Date: 20090918
  Transmission Date: 20100525
  Serious: Yes (Hospitalization)
  Sender: FDA-Public Use
  Company Number: JPI-P-008616

PATIENT
  Age: 40 Year
  Sex: Female

DRUGS (2)
  1. XYREM [Suspect]
     Indication: CATAPLEXY
     Dosage: 1.5 TO 2.25 GM TWICE NIGHTLY, ORAL 9 GM (4.5 GM, 2 IN 1 D), ORAL
     Route: 048
     Dates: start: 20080905
  2. XYREM [Suspect]
     Indication: CATAPLEXY
     Dosage: 1.5 TO 2.25 GM TWICE NIGHTLY, ORAL 9 GM (4.5 GM, 2 IN 1 D), ORAL
     Route: 048
     Dates: start: 20090917

REACTIONS (1)
  - MENTAL DISORDER [None]
